FAERS Safety Report 21362845 (Version 2)
Quarter: 2022Q3

REPORT INFORMATION
  Report Type: Report from Study
  Country: US (occurrence: US)
  Receive Date: 20220922
  Receipt Date: 20220930
  Transmission Date: 20221026
  Serious: No
  Sender: FDA-Public Use
  Company Number: US-ABBVIE-4128760

PATIENT
  Sex: Male

DRUGS (4)
  1. RINVOQ [Suspect]
     Active Substance: UPADACITINIB
     Indication: Rheumatoid arthritis
     Route: 048
     Dates: start: 2020
  2. Johnson + Johnson [Concomitant]
     Indication: COVID-19 immunisation
     Dosage: 1 IN 1 ONCE; FIRST DOSE
     Route: 030
     Dates: start: 20220301, end: 20220301
  3. Johnson + Johnson [Concomitant]
     Indication: COVID-19 immunisation
     Dosage: 1 IN 1 ONCE; SECOND DOSE
     Route: 030
  4. Moderna [Concomitant]
     Indication: COVID-19 immunisation
     Dosage: 1 IN 1 ONCE; BOOSTER DOSE OR THIRD DOSE
     Route: 030
     Dates: start: 20220901, end: 20220901

REACTIONS (1)
  - Rheumatoid arthritis [Not Recovered/Not Resolved]
